FAERS Safety Report 8723332 (Version 2)
Quarter: 2012Q4

REPORT INFORMATION
  Report Type: 
  Country: US (occurrence: US)
  Receive Date: 20120814
  Receipt Date: 20121003
  Transmission Date: 20130627
  Serious: Yes (Hospitalization)
  Sender: FDA-Public Use
  Company Number: US-ELI_LILLY_AND_COMPANY-US201208001883

PATIENT
  Age: 48 None
  Sex: Male
  Weight: 99.77 kg

DRUGS (15)
  1. FORTEO [Suspect]
     Indication: OSTEOPOROSIS
     Dosage: 20 mg, qd
     Route: 058
     Dates: start: 20120402
  2. FORTEO [Suspect]
     Dosage: 20 mg, qd
  3. FORTEO [Suspect]
     Dosage: 20 mg, qd
     Dates: end: 201205
  4. ADVIL /00109201/ [Concomitant]
  5. BENADRYL                           /00000402/ [Concomitant]
  6. OMEPRAZOLE [Concomitant]
     Dosage: 20 DF, qd
  7. ATIVAN [Concomitant]
     Dosage: as directed
  8. TESTOSTERONE [Concomitant]
  9. ERGOCALCIFEROL [Concomitant]
     Dosage: 50000 u, weekly (1/W)
  10. FOLIC ACID [Concomitant]
     Dosage: 1 DF, qd
  11. MULTIVITAMIN [Concomitant]
     Dosage: UNK, qd
  12. THIAMINE [Concomitant]
  13. FISH OIL [Concomitant]
  14. VITAMIN C [Concomitant]
  15. VITAMIN B NOS [Concomitant]

REACTIONS (12)
  - Alcohol abuse [Unknown]
  - Alcohol withdrawal syndrome [Unknown]
  - Drug withdrawal syndrome [Unknown]
  - Gastritis [Recovered/Resolved]
  - Musculoskeletal discomfort [Recovered/Resolved]
  - Dehydration [Unknown]
  - Drug administration error [Unknown]
  - Bone disorder [Unknown]
  - Malaise [Unknown]
  - Fear [Unknown]
  - Injection site bruising [Unknown]
  - Hypophagia [Unknown]
